FAERS Safety Report 13465860 (Version 2)
Quarter: 2017Q2

REPORT INFORMATION
  Report Type: Report from Study
  Country: US (occurrence: US)
  Receive Date: 20170421
  Receipt Date: 20170502
  Transmission Date: 20170830
  Serious: Yes (Disabling, Other)
  Sender: FDA-Public Use
  Company Number: US-SUN PHARMACEUTICAL INDUSTRIES LTD-2017US-138856

PATIENT
  Sex: Female

DRUGS (1)
  1. ODOMZO [Suspect]
     Active Substance: SONIDEGIB
     Indication: BASAL CELL CARCINOMA
     Dosage: UNK
     Route: 065
     Dates: start: 2016, end: 20160620

REACTIONS (6)
  - Drug ineffective [Unknown]
  - Disease progression [Unknown]
  - Rhinoscleroma [Unknown]
  - Tympanoplasty [Unknown]
  - Arterial graft [Unknown]
  - Deafness [Unknown]
